FAERS Safety Report 11898351 (Version 1)
Quarter: 2016Q1

REPORT INFORMATION
  Report Type: Spontaneous
  Country: FR (occurrence: FR)
  Receive Date: 20160108
  Receipt Date: 20160108
  Transmission Date: 20160526
  Serious: Yes (Hospitalization)
  Sender: FDA-Public Use
  Company Number: FR-BIOVITRUM-2016FR0004

PATIENT
  Age: 80 Year
  Sex: Male

DRUGS (11)
  1. KINERET [Suspect]
     Active Substance: ANAKINRA
     Route: 058
     Dates: start: 201412, end: 201508
  2. BISOPROLOL [Concomitant]
     Active Substance: BISOPROLOL
     Dosage: IN THE MORNING
  3. KINERET [Suspect]
     Active Substance: ANAKINRA
     Indication: POLYCHONDRITIS
     Route: 058
     Dates: start: 201402, end: 201412
  4. XARELTO [Concomitant]
     Active Substance: RIVAROXABAN
  5. ALFUZOSINE [Concomitant]
     Active Substance: ALFUZOSIN HYDROCHLORIDE
     Dosage: IN THE EVENING
  6. AMLODIPINE [Concomitant]
     Active Substance: AMLODIPINE BESYLATE
     Dosage: IN THE MORNING
  7. ROACTEMRA [Suspect]
     Active Substance: TOCILIZUMAB
     Dosage: 20 MG/ML SOLUTION TO DILUTE FOR PERFUSION
     Route: 042
     Dates: start: 201310, end: 201310
  8. METHOTREXATE [Suspect]
     Active Substance: METHOTREXATE
     Indication: POLYCHONDRITIS
     Dosage: 15 MG/WEEK
     Route: 048
     Dates: start: 201308, end: 201310
  9. EPREX [Concomitant]
     Active Substance: ERYTHROPOIETIN
     Dosage: 40000 IU ON WEDNESDAY
  10. PREDNISONE. [Suspect]
     Active Substance: PREDNISONE
  11. GELTIM LP [Concomitant]
     Active Substance: TIMOLOL MALEATE
     Dosage: 1 IN EACH EYE DAILY

REACTIONS (1)
  - Adenocarcinoma of colon [Not Recovered/Not Resolved]

NARRATIVE: CASE EVENT DATE: 201508
